FAERS Safety Report 8590682-5 (Version None)
Quarter: 2012Q3

REPORT INFORMATION
  Report Type: 
  Country: None (occurrence: None)
  Receive Date: 20120813
  Receipt Date: 20120801
  Transmission Date: 20120928
  Serious: Yes (Hospitalization)
  Sender: FDA-Public Use
  Company Number: FR-JNJFOC-20120805700

PATIENT
  Sex: Male

DRUGS (11)
  1. VIT K ANTAGONISTS [Concomitant]
  2. ALLOPURINOL [Concomitant]
  3. BISOPROLOL FUMARATE [Concomitant]
  4. RAMIPRIL [Concomitant]
  5. ASPIRIN [Concomitant]
  6. XARELTO [Suspect]
     Indication: PRODUCT USED FOR UNKNOWN INDICATION
     Route: 065
  7. FLUINDIONE [Concomitant]
  8. PLAVIX [Concomitant]
  9. POTASSIUM CHLORIDE [Concomitant]
  10. LASIX [Concomitant]
  11. PANTOPRAZOLE [Concomitant]

REACTIONS (2)
  - CARDIAC FAILURE [None]
  - THROMBOSIS IN DEVICE [None]
